FAERS Safety Report 8169563 (Version 6)
Quarter: 2013Q3

REPORT INFORMATION
  Report Type: Report from Study
  Country: CA (occurrence: CA)
  Receive Date: 20111005
  Receipt Date: 20130801
  Transmission Date: 20140515
  Serious: Yes (Death, Other)
  Sender: FDA-Public Use
  Company Number: PHHY2011CA87478

PATIENT
  Age: 59 Year
  Sex: Female

DRUGS (18)
  1. ACLASTA [Suspect]
     Indication: OSTEOPOROSIS
     Dosage: 5 MG, UNK
     Route: 042
     Dates: start: 20101019
  2. ACLASTA [Suspect]
     Dosage: 5 MG, UNK
     Route: 042
     Dates: start: 20111020
  3. ACLASTA [Suspect]
     Dosage: 5 MG, UNK
     Route: 042
     Dates: start: 20121023
  4. OXYCONTIN [Concomitant]
  5. SYNTHROID [Concomitant]
     Dosage: 1 DF, QD
     Dates: start: 20121022
  6. EFFEXOR [Concomitant]
  7. ACIDOPHILUS [Concomitant]
  8. OXYCOCET [Concomitant]
  9. ATORVASTATIN [Concomitant]
     Dosage: 1 DF, AT BED TIME
     Dates: start: 20121022
  10. MAGNESIUM SULFATE [Concomitant]
     Dosage: 10 MG 4-6/DAY
  11. ONDANSETRON SANDOZ [Concomitant]
     Dosage: 1 DF, THREE TIMES A DAY WHEN REQUIRED
     Dates: start: 20121022
  12. ATIVAN [Concomitant]
     Dosage: 1 DF, BID
     Route: 060
     Dates: start: 20121022
  13. PANTOPRAZOLO SANDOZ [Concomitant]
     Dosage: 1 DF, BID
  14. VENLAFAXINE TEVA [Concomitant]
     Dosage: 1 DF, BID
  15. OXYNEO [Concomitant]
     Dosage: 1 DF, TID
     Dates: start: 20121022
  16. ZOFRAN [Concomitant]
     Dosage: 4 MG, PRN
  17. AZITHROMYCIN SANDOZ [Concomitant]
     Dosage: 1 DF, UNTIL FINISHED, 2 TABLETS AT ONCE
     Dates: start: 20130103
  18. TWINRIX [Concomitant]
     Dosage: UNK
     Dates: start: 20121217

REACTIONS (5)
  - Death [Fatal]
  - Helicobacter infection [Unknown]
  - Diarrhoea [Unknown]
  - Vomiting [Unknown]
  - Gastrointestinal disorder [Unknown]
